FAERS Safety Report 26081233 (Version 2)
Quarter: 2025Q4

REPORT INFORMATION
  Report Type: Report from Study
  Country: US (occurrence: US)
  Receive Date: 20251124
  Receipt Date: 20251218
  Transmission Date: 20260118
  Serious: Yes (Hospitalization, Other)
  Sender: ACADIA PHARMACEUTICALS
  Company Number: US-ACADIA PHARMACEUTICALS INC.-ACA-2025-PIM-012431

PATIENT
  Age: 84 Year
  Sex: Female

DRUGS (25)
  1. NUPLAZID [Suspect]
     Active Substance: PIMAVANSERIN TARTRATE
     Indication: Parkinson^s disease psychosis
     Dosage: 34 MILLIGRAM, QD
     Route: 048
     Dates: start: 20250303, end: 20251114
  2. NUPLAZID [Suspect]
     Active Substance: PIMAVANSERIN TARTRATE
     Dosage: 34 MILLIGRAM, QD
     Route: 048
  3. ELIQUIS [Concomitant]
     Active Substance: APIXABAN
  4. TAMSULOSIN [Concomitant]
     Active Substance: TAMSULOSIN
  5. CARVEDILOL [Concomitant]
     Active Substance: CARVEDILOL
  6. CARBIDOPA AND LEVODOPA [Concomitant]
     Active Substance: CARBIDOPA\LEVODOPA
  7. AMLODIPINE [Concomitant]
     Active Substance: AMLODIPINE BESYLATE
  8. GLYCOPYRROLATE [Concomitant]
     Active Substance: GLYCOPYRROLATE
  9. LOSARTAN [Concomitant]
     Active Substance: LOSARTAN
  10. DOXAZOSIN [Concomitant]
     Active Substance: DOXAZOSIN MESYLATE
  11. ATORVASTATIN [Concomitant]
     Active Substance: ATORVASTATIN
  12. ONDANSETRON [Concomitant]
     Active Substance: ONDANSETRON
  13. DICYCLOMINE [Concomitant]
     Active Substance: DICYCLOMINE HYDROCHLORIDE
  14. METHOCARBAMOL [Concomitant]
     Active Substance: METHOCARBAMOL
  15. MELATONIN [Concomitant]
     Active Substance: MELATONIN
  16. ESCITALOPRAM [Concomitant]
     Active Substance: ESCITALOPRAM OXALATE
  17. FUROSEMIDE [Concomitant]
     Active Substance: FUROSEMIDE
  18. NITROGLYCERIN [Concomitant]
     Active Substance: NITROGLYCERIN
     Dosage: SUB
  19. FLOMAX [Concomitant]
     Active Substance: TAMSULOSIN HYDROCHLORIDE
  20. SINEMET [Concomitant]
     Active Substance: CARBIDOPA\LEVODOPA
  21. LIPITOR [Concomitant]
     Active Substance: ATORVASTATIN CALCIUM
  22. ONDANSETRON [Concomitant]
     Active Substance: ONDANSETRON
  23. LEXAPRO [Concomitant]
     Active Substance: ESCITALOPRAM OXALATE
  24. LASIX [Concomitant]
     Active Substance: FUROSEMIDE
  25. NITROSTAT [Concomitant]
     Active Substance: NITROGLYCERIN

REACTIONS (14)
  - Rib fracture [Not Recovered/Not Resolved]
  - Brain injury [Not Recovered/Not Resolved]
  - Cerebral haemorrhage [Unknown]
  - Chest injury [Unknown]
  - Fall [Not Recovered/Not Resolved]
  - Urinary tract infection [Unknown]
  - Seizure [Unknown]
  - Choking [Unknown]
  - Unresponsive to stimuli [Unknown]
  - Hallucination [Not Recovered/Not Resolved]
  - Nystagmus [Unknown]
  - Musculoskeletal chest pain [Not Recovered/Not Resolved]
  - Insomnia [Not Recovered/Not Resolved]
  - Product dose omission issue [Unknown]

NARRATIVE: CASE EVENT DATE: 20251102
